FAERS Safety Report 8346726-9 (Version None)
Quarter: 2012Q2

REPORT INFORMATION
  Report Type: 
  Country: None (occurrence: None)
  Receive Date: 20120508
  Receipt Date: 20120508
  Transmission Date: 20120825
  Serious: Yes (Hospitalization)
  Sender: FDA-Public Use
  Company Number: None

PATIENT

DRUGS (7)
  1. LOVASTATIN [Concomitant]
  2. BICARBONATE [Concomitant]
  3. LISINOPRIL [Suspect]
     Indication: HYPERTENSION
     Dosage: 40 MG DAILY ORALLY  SEVERAL YEARS
     Route: 048
  4. LISINOPRIL [Suspect]
     Indication: RENAL FAILURE CHRONIC
     Dosage: 40 MG DAILY ORALLY  SEVERAL YEARS
     Route: 048
  5. AMLODIPINE BESYLATE [Concomitant]
  6. ATENOLOL [Concomitant]
  7. ASPIRIN [Concomitant]

REACTIONS (4)
  - STRIDOR [None]
  - DYSPHAGIA [None]
  - RESPIRATORY DISTRESS [None]
  - ANGIOEDEMA [None]
